FAERS Safety Report 10649080 (Version 11)
Quarter: 2018Q3

REPORT INFORMATION
  Report Type: Report from Study
  Country: US (occurrence: US)
  Receive Date: 20141212
  Receipt Date: 20180725
  Transmission Date: 20181010
  Serious: Yes (Hospitalization, Other)
  Sender: FDA-Public Use
  Company Number: US-SA-2014SA137265

PATIENT
  Age: 50 Year
  Sex: Female

DRUGS (8)
  1. TECFIDERA [Concomitant]
     Active Substance: DIMETHYL FUMARATE
     Dosage: UNK
     Dates: start: 20130901, end: 20140901
  2. TERIFLUNOMIDE [Suspect]
     Active Substance: TERIFLUNOMIDE
     Indication: MULTIPLE SCLEROSIS
     Dosage: 14 MG,QD
     Route: 048
     Dates: start: 20140904, end: 20140929
  3. CITALOPRAM HYDROBROMIDE. [Concomitant]
     Active Substance: CITALOPRAM HYDROBROMIDE
     Dosage: UNK
  4. NUVIGIL [Concomitant]
     Active Substance: ARMODAFINIL
     Dosage: UNK UNK,UNK
  5. CYMBALTA [Concomitant]
     Active Substance: DULOXETINE HYDROCHLORIDE
     Dosage: UNK
  6. TERIFLUNOMIDE [Suspect]
     Active Substance: TERIFLUNOMIDE
     Dosage: 14 MG,QD
     Route: 048
     Dates: start: 20141113, end: 20150922
  7. TERIFLUNOMIDE [Suspect]
     Active Substance: TERIFLUNOMIDE
     Dosage: 1 DF
     Route: 048
     Dates: start: 2016, end: 2016
  8. CORTICOSTEROID NOS [Concomitant]
     Active Substance: CORTICOSTEROID NOS
     Dosage: UNK

REACTIONS (33)
  - Intervertebral disc protrusion [Unknown]
  - Headache [Unknown]
  - Sepsis [Recovered/Resolved]
  - Back disorder [Unknown]
  - Blood pressure fluctuation [Recovering/Resolving]
  - Spondylitis [Unknown]
  - Pain in extremity [Unknown]
  - Carpal tunnel syndrome [Unknown]
  - Disability [Unknown]
  - Fatigue [Recovering/Resolving]
  - Contusion [Unknown]
  - Condition aggravated [Unknown]
  - Pain [Recovered/Resolved]
  - Cyst [Recovered/Resolved]
  - Stress fracture [Unknown]
  - Hyperaesthesia [Unknown]
  - Diarrhoea [Unknown]
  - Hypertension [Not Recovered/Not Resolved]
  - Coordination abnormal [Unknown]
  - Feeling abnormal [Unknown]
  - Stenosis [Recovered/Resolved]
  - Wound infection [Recovered/Resolved]
  - Arrhythmia [Unknown]
  - Burning sensation [Unknown]
  - Eye disorder [Unknown]
  - Hypoaesthesia [Recovered/Resolved]
  - Hypoaesthesia [Unknown]
  - Dysphagia [Unknown]
  - Paraesthesia [Unknown]
  - Arthritis [Unknown]
  - Mobility decreased [Unknown]
  - Nausea [Unknown]
  - Gastric disorder [Unknown]

NARRATIVE: CASE EVENT DATE: 201501
